FAERS Safety Report 23220212 (Version 2)
Quarter: 2023Q4

REPORT INFORMATION
  Report Type: Report from Study
  Country: US (occurrence: US)
  Receive Date: 20231123
  Receipt Date: 20231124
  Transmission Date: 20240109
  Serious: Yes (Death, Hospitalization)
  Sender: FDA-Public Use
  Company Number: US-ABBVIE-5507829

PATIENT
  Age: 87 Year
  Sex: Male
  Weight: 52.163 kg

DRUGS (1)
  1. HUMIRA [Suspect]
     Active Substance: ADALIMUMAB
     Indication: Rheumatoid arthritis
     Dosage: STRENGTH: 40 MG?CITRATE FREE
     Route: 058
     Dates: start: 2022, end: 202308

REACTIONS (4)
  - Cardiomyopathy [Fatal]
  - Pneumonia [Fatal]
  - Renal failure [Fatal]
  - Atrial fibrillation [Fatal]

NARRATIVE: CASE EVENT DATE: 20230901
